FAERS Safety Report 8344167-1 (Version None)
Quarter: 2012Q2

REPORT INFORMATION
  Report Type: 
  Country: None (occurrence: None)
  Receive Date: 20120508
  Receipt Date: 20120502
  Transmission Date: 20120825
  Serious: Yes (Other)
  Sender: FDA-Public Use
  Company Number: PHHY2012CA036787

PATIENT
  Sex: Female

DRUGS (18)
  1. KETOPROFEN [Concomitant]
     Dosage: 50 MG, 2 CO
  2. PREDNISONE TAB [Concomitant]
     Dosage: 5 MG, 1.5 CO
  3. DOMPERIDONE [Concomitant]
     Dosage: 10 MG
  4. ZOLEDRONOC ACID [Suspect]
     Route: 042
     Dates: start: 20120406
  5. FOLIC ACID [Concomitant]
     Dosage: 5 MG, 0.5 CO
  6. SYNTHROID [Concomitant]
     Dosage: 0.088 MG
  7. ASPIRIN [Concomitant]
  8. ATIVAN [Concomitant]
     Dosage: 1 MG, 1.5 CO
  9. VITAMIN B-12 [Concomitant]
  10. FERROUS SULFATE TAB [Concomitant]
     Dosage: 150MG/5ML
  11. ZOLEDRONOC ACID [Suspect]
     Indication: OSTEOPOROSIS
     Route: 042
     Dates: start: 20110325
  12. IRON [Concomitant]
  13. PANTOPRAZOLE [Concomitant]
     Dosage: 40 MG
  14. CALCIUM WITH VITAMIN D [Concomitant]
  15. PLAVIX [Concomitant]
     Dosage: 75 MG
  16. METHOTREXATE [Concomitant]
     Dosage: 2.5 MG - 3 CO PER WEEK
  17. RAMIPRIL [Concomitant]
  18. ATORVASTATIN CALCIUM [Concomitant]
     Dosage: 80 MG

REACTIONS (14)
  - GENERAL PHYSICAL HEALTH DETERIORATION [None]
  - HYPERHIDROSIS [None]
  - ASTHENIA [None]
  - MYOCARDIAL INFARCTION [None]
  - PAIN IN EXTREMITY [None]
  - BONE PAIN [None]
  - FATIGUE [None]
  - PAIN [None]
  - CHILLS [None]
  - LOSS OF CONSCIOUSNESS [None]
  - EPISTAXIS [None]
  - GAIT DISTURBANCE [None]
  - NAUSEA [None]
  - GASTROOESOPHAGEAL REFLUX DISEASE [None]
